FAERS Safety Report 19728236 (Version 1)
Quarter: 2021Q3

REPORT INFORMATION
  Report Type: Spontaneous
  Country: DE (occurrence: DE)
  Receive Date: 20210820
  Receipt Date: 20210820
  Transmission Date: 20211014
  Serious: Yes (Hospitalization, Other)
  Sender: FDA-Public Use
  Company Number: DE-TEVA-2021-DE-1942585

PATIENT
  Age: 60 Year
  Sex: Male
  Weight: 58 kg

DRUGS (11)
  1. IRINOTECAN [Suspect]
     Active Substance: IRINOTECAN
     Dosage: ACCORDING TO THE SCHEME
     Route: 042
  2. METFORMIN [Concomitant]
     Active Substance: METFORMIN HYDROCHLORIDE
     Dosage: 1000 MILLIGRAM DAILY; 500 MG, 1?0?1?0
     Route: 048
  3. ATORVASTATIN [Concomitant]
     Active Substance: ATORVASTATIN
     Dosage: 20 MILLIGRAM DAILY;  0?0?1?0
     Route: 048
  4. FLUOROURACIL. [Suspect]
     Active Substance: FLUOROURACIL
     Dosage: ACCORDING TO THE SCHEME
     Route: 042
  5. LEVOTHYROXINE SODIUM. [Concomitant]
     Active Substance: LEVOTHYROXINE SODIUM
     Dosage: 75 MICROGRAM DAILY; 75 MCG, 1?0?0?0
     Route: 048
  6. VIGANTOL 1000 I.E. VITAMIN D3 TABLETTEN [Concomitant]
     Dosage: 1000 IU (INTERNATIONAL UNIT) DAILY;  0?0?1?0
     Route: 048
  7. FENTANYL. [Concomitant]
     Active Substance: FENTANYL
     Dosage: 37.5 MCG / H, CHANGE EVERY THREE DAYS
     Route: 062
  8. ULTIBRO BREEZHALER 85MIKROGRAMM/43MIKROGRAMM [Concomitant]
     Dosage: 1 DOSAGE FORMS DAILY; 1?0?0?0, POWDER CAPSULES
     Route: 055
  9. METAMIZOL [Concomitant]
     Active Substance: METAMIZOLE SODIUM
     Dosage: 160 GTT DAILY; 40 GTT, 1?1?1?1, DROPS
     Route: 048
  10. OXALIPLATIN. [Suspect]
     Active Substance: OXALIPLATIN
     Dosage: ACCORDING TO THE SCHEME
     Route: 042
  11. FOLINSAEURE [Suspect]
     Active Substance: LEUCOVORIN
     Dosage: ACCORDING TO THE SCHEME
     Route: 042

REACTIONS (4)
  - Cachexia [Unknown]
  - General physical health deterioration [Unknown]
  - Gastritis haemorrhagic [Unknown]
  - Weight decreased [Unknown]
